FAERS Safety Report 7918053-2 (Version None)
Quarter: 2011Q4

REPORT INFORMATION
  Report Type: 
  Country: None (occurrence: None)
  Receive Date: 20111114
  Receipt Date: 20111031
  Transmission Date: 20120403
  Serious: Yes (Other)
  Sender: FDA-Public Use
  Company Number: 1000025121

PATIENT
  Age: 42 Year
  Sex: Female

DRUGS (4)
  1. PROPRANOLOL HYDROCHLORIDE [Suspect]
     Indication: ADRENAL MASS
     Dosage: 60 MG (20 MG, 3 IN 1 D), ORAL
     Route: 048
  2. FLECAINIDE ACETATE [Suspect]
     Indication: ATRIAL FIBRILLATION
     Dosage: 100 MG (100 MG, 1 IN 1 D), ORAL
     Route: 048
  3. DOXAZOSIN MESYLATE [Suspect]
     Indication: ADRENAL MASS
     Dosage: 8 MG (8 MG, 1 IN 1 D), ORAL
     Route: 048
  4. ACENOCOUMAROL (ACENOCOUMAROL) [Suspect]
     Indication: ATRIAL FIBRILLATION
     Dosage: ORAL
     Route: 048

REACTIONS (4)
  - SINUS BRADYCARDIA [None]
  - BLOOD PRESSURE INCREASED [None]
  - TORSADE DE POINTES [None]
  - HYPOMAGNESAEMIA [None]
